FAERS Safety Report 4804171-4 (Version None)
Quarter: 2005Q4

REPORT INFORMATION
  Report Type: 
  Country: None (occurrence: None)
  Receive Date: 20051014
  Receipt Date: 20051007
  Transmission Date: 20060501
  Serious: Yes (Hospitalization, Other)
  Sender: FDA-Public Use
  Company Number: KII-2005-0018965

PATIENT
  Age: 31 Year
  Sex: Male

DRUGS (4)
  1. OXYCONTIN [Suspect]
     Dosage: ORAL
     Route: 048
  2. METHADONE HCL [Suspect]
     Dosage: ORAL
     Route: 048
     Dates: start: 20050910
  3. BENZODIAZEPINE DERIVATIVES [Suspect]
  4. COCAINE (COCAINE) [Suspect]
     Indication: INTENTIONAL DRUG MISUSE

REACTIONS (5)
  - BLOOD CREATINE PHOSPHOKINASE INCREASED [None]
  - COMA [None]
  - DRUG ABUSER [None]
  - LOSS OF CONSCIOUSNESS [None]
  - SOMNOLENCE [None]
